FAERS Safety Report 11617372 (Version 1)
Quarter: 2015Q4

REPORT INFORMATION
  Report Type: Spontaneous
  Country: PL (occurrence: PL)
  Receive Date: 20151009
  Receipt Date: 20151009
  Transmission Date: 20160304
  Serious: Yes (Other)
  Sender: FDA-Public Use
  Company Number: PL-ELI_LILLY_AND_COMPANY-CZ201509009983

PATIENT
  Age: 85 Year
  Sex: Female
  Weight: 60 kg

DRUGS (16)
  1. INSULIN HUMAN [Suspect]
     Active Substance: INSULIN HUMAN
     Indication: TYPE 2 DIABETES MELLITUS
     Dosage: 6 IU, QD
     Route: 065
     Dates: start: 2008
  2. INSULIN HUMAN [Suspect]
     Active Substance: INSULIN HUMAN
     Dosage: 6 IU, QD
     Route: 065
     Dates: start: 2012
  3. INSULIN HUMAN [Suspect]
     Active Substance: INSULIN HUMAN
     Dosage: 8 IU, QD
     Route: 065
     Dates: start: 201506
  4. INSULIN HUMAN [Suspect]
     Active Substance: INSULIN HUMAN
     Dosage: 34 IU, QD
     Route: 065
     Dates: start: 2008
  5. HUMAN INSULIN [Suspect]
     Active Substance: INSULIN HUMAN
     Indication: TYPE 2 DIABETES MELLITUS
     Dosage: 6 IU, QD
     Route: 065
     Dates: start: 2012
  6. INSULIN HUMAN [Suspect]
     Active Substance: INSULIN HUMAN
     Dosage: 14 IU, QID
     Route: 065
     Dates: start: 2012
  7. INSULIN HUMAN [Suspect]
     Active Substance: INSULIN HUMAN
     Dosage: 40 IU, QD
     Route: 065
     Dates: start: 200811
  8. INSULIN HUMAN [Suspect]
     Active Substance: INSULIN HUMAN
     Dosage: 8 IU, QD
     Route: 065
     Dates: start: 2012
  9. INSULIN HUMAN [Suspect]
     Active Substance: INSULIN HUMAN
     Dosage: 18 IU, QD
     Route: 065
     Dates: start: 201506
  10. HUMAN INSULIN [Suspect]
     Active Substance: INSULIN HUMAN
     Dosage: UNK UNK, PRN
     Route: 065
     Dates: start: 201506
  11. GLIMEPIRIDE. [Concomitant]
     Active Substance: GLIMEPIRIDE
  12. INSULIN HUMAN [Suspect]
     Active Substance: INSULIN HUMAN
     Indication: TYPE 2 DIABETES MELLITUS
     Dosage: 16 IU, QD
     Route: 065
     Dates: start: 200106
  13. INSULIN HUMAN [Suspect]
     Active Substance: INSULIN HUMAN
     Dosage: 10 IU, QD
     Route: 065
     Dates: start: 201506
  14. METFORMIN [Concomitant]
     Active Substance: METFORMIN HYDROCHLORIDE
  15. INSULIN HUMAN [Suspect]
     Active Substance: INSULIN HUMAN
     Dosage: 20 IU, QD
     Route: 065
     Dates: start: 200106
  16. INSULIN HUMAN [Suspect]
     Active Substance: INSULIN HUMAN
     Dosage: 6 IU, QD
     Route: 065
     Dates: start: 2008

REACTIONS (7)
  - Diabetic retinopathy [Unknown]
  - Blood glucose increased [Unknown]
  - Blood glucose increased [Unknown]
  - Blood glucose increased [Unknown]
  - Cataract [Unknown]
  - Glaucoma [Unknown]
  - Hypoglycaemia [Unknown]

NARRATIVE: CASE EVENT DATE: 2008
